FAERS Safety Report 11387239 (Version 1)
Quarter: 2015Q3

REPORT INFORMATION
  Report Type: Spontaneous
  Country: US (occurrence: None)
  Receive Date: 20150814
  Receipt Date: 20150814
  Transmission Date: 20151125
  Serious: Yes (Hospitalization)
  Sender: FDA-Public Use
  Company Number: None

PATIENT
  Age: 89 Year
  Sex: Female
  Weight: 65.8 kg

DRUGS (13)
  1. FISH OIL [Concomitant]
     Active Substance: FISH OIL
  2. MVI [Concomitant]
     Active Substance: VITAMINS
  3. LOFIBRA [Concomitant]
     Active Substance: FENOFIBRATE
  4. LOSARTAN. [Concomitant]
     Active Substance: LOSARTAN
  5. DESYREL [Concomitant]
     Active Substance: TRAZODONE HYDROCHLORIDE
  6. BETIMOL [Concomitant]
     Active Substance: TIMOLOL
  7. LUMIGAN [Concomitant]
     Active Substance: BIMATOPROST
  8. LOPRESSOR [Concomitant]
     Active Substance: METOPROLOL TARTRATE
  9. ZANTAC [Concomitant]
     Active Substance: RANITIDINE HYDROCHLORIDE
  10. ECOTRIN [Suspect]
     Active Substance: ASPIRIN
     Indication: CEREBROVASCULAR ACCIDENT PROPHYLAXIS
     Dosage: CHRONIC
     Route: 048
  11. VITAMIN D3 [Concomitant]
     Active Substance: CHOLECALCIFEROL
  12. COLACE [Concomitant]
     Active Substance: DOCUSATE SODIUM
  13. APHAGAN [Concomitant]

REACTIONS (1)
  - Rectal haemorrhage [None]

NARRATIVE: CASE EVENT DATE: 20150622
